FAERS Safety Report 25015065 (Version 3)
Quarter: 2025Q1

REPORT INFORMATION
  Report Type: Spontaneous
  Country: CA (occurrence: CA)
  Receive Date: 20250226
  Receipt Date: 20250318
  Transmission Date: 20250409
  Serious: Yes (Death, Life-Threatening, Hospitalization, Disabling, Other)
  Sender: TEVA
  Company Number: CA-TEVA-VS-3303269

PATIENT
  Age: 44 Year
  Sex: Female
  Weight: 60 kg

DRUGS (20)
  1. LANSOPRAZOLE [Suspect]
     Active Substance: LANSOPRAZOLE
     Indication: Product used for unknown indication
     Route: 065
  2. RAMIPRIL [Suspect]
     Active Substance: RAMIPRIL
     Indication: Product used for unknown indication
     Route: 065
  3. MYCOPHENOLATE MOFETIL [Suspect]
     Active Substance: MYCOPHENOLATE MOFETIL
     Indication: Product used for unknown indication
     Route: 065
  4. CHLORHEXIDINE GLUCONATE [Suspect]
     Active Substance: CHLORHEXIDINE GLUCONATE
     Indication: Product used for unknown indication
     Route: 065
  5. ATIVAN [Suspect]
     Active Substance: LORAZEPAM
     Indication: Product used for unknown indication
     Route: 065
  6. PREGABALIN [Suspect]
     Active Substance: PREGABALIN
     Indication: Product used for unknown indication
     Route: 065
  7. CAFFEINE [Suspect]
     Active Substance: CAFFEINE
     Indication: Product used for unknown indication
     Route: 065
  8. CELECOXIB [Suspect]
     Active Substance: CELECOXIB
     Indication: Product used for unknown indication
     Route: 065
  9. MAGNESIUM [Suspect]
     Active Substance: MAGNESIUM
     Indication: Product used for unknown indication
     Route: 065
  10. IBUPROFEN [Suspect]
     Active Substance: IBUPROFEN
     Indication: Product used for unknown indication
     Route: 065
  11. LORAZEPAM [Suspect]
     Active Substance: LORAZEPAM
     Indication: Product used for unknown indication
     Route: 065
  12. LISINOPRIL [Suspect]
     Active Substance: LISINOPRIL
     Indication: Product used for unknown indication
     Route: 065
  13. LISINOPRIL [Suspect]
     Active Substance: LISINOPRIL
     Indication: Product used for unknown indication
     Route: 065
  14. PANTOPRAZOLE [Suspect]
     Active Substance: PANTOPRAZOLE
     Indication: Product used for unknown indication
     Route: 065
  15. ALBUTEROL [Suspect]
     Active Substance: ALBUTEROL
     Indication: Product used for unknown indication
     Route: 065
  16. QUETIAPINE [Suspect]
     Active Substance: QUETIAPINE
     Indication: Product used for unknown indication
     Route: 065
  17. DIPHENHYDRAMINE [Suspect]
     Active Substance: DIPHENHYDRAMINE
     Indication: Product used for unknown indication
     Route: 065
  18. AZATHIOPRINE [Suspect]
     Active Substance: AZATHIOPRINE
     Indication: Product used for unknown indication
     Route: 065
  19. MESALAMINE [Suspect]
     Active Substance: MESALAMINE
     Indication: Product used for unknown indication
     Route: 065
  20. CALCIUM GLUCONATE [Suspect]
     Active Substance: CALCIUM GLUCONATE
     Indication: Product used for unknown indication
     Route: 065

REACTIONS (87)
  - Abdominal discomfort [Fatal]
  - Asthenia [Fatal]
  - Joint stiffness [Fatal]
  - Laryngitis [Fatal]
  - Weight increased [Fatal]
  - Joint dislocation [Fatal]
  - Muscle spasms [Fatal]
  - Duodenal ulcer perforation [Fatal]
  - Musculoskeletal pain [Fatal]
  - Stomatitis [Fatal]
  - Dyspnoea [Fatal]
  - Pyrexia [Fatal]
  - Osteoarthritis [Fatal]
  - Gastrointestinal disorder [Fatal]
  - Muscular weakness [Fatal]
  - Aspartate aminotransferase abnormal [Fatal]
  - Muscle injury [Fatal]
  - Dislocation of vertebra [Fatal]
  - Anti-cyclic citrullinated peptide antibody positive [Fatal]
  - Delirium [Fatal]
  - Red blood cell sedimentation rate increased [Fatal]
  - Impaired healing [Fatal]
  - Night sweats [Fatal]
  - Pancreatitis [Fatal]
  - Rheumatic fever [Fatal]
  - Protein total increased [Fatal]
  - White blood cell count increased [Fatal]
  - Discomfort [Fatal]
  - Foot deformity [Fatal]
  - Retinitis [Fatal]
  - Paraesthesia [Fatal]
  - Blister [Fatal]
  - Anxiety [Fatal]
  - Arthralgia [Fatal]
  - Depression [Fatal]
  - Nasopharyngitis [Fatal]
  - Oedema peripheral [Fatal]
  - Depressed mood [Fatal]
  - Lip dry [Fatal]
  - Peripheral swelling [Fatal]
  - Rectal haemorrhage [Fatal]
  - Adjustment disorder with depressed mood [Fatal]
  - Antiphospholipid antibodies [Fatal]
  - Pruritus [Fatal]
  - Autoimmune disorder [Fatal]
  - Chest pain [Fatal]
  - Mobility decreased [Fatal]
  - Drug tolerance decreased [Fatal]
  - Rheumatoid arthritis [Fatal]
  - Ear infection [Fatal]
  - Visual impairment [Fatal]
  - Colitis ulcerative [Fatal]
  - Arthropathy [Fatal]
  - Respiratory disorder [Fatal]
  - Blood cholesterol increased [Fatal]
  - Insomnia [Fatal]
  - Wound infection [Fatal]
  - Contusion [Fatal]
  - Alopecia [Fatal]
  - Liver disorder [Fatal]
  - Amnesia [Fatal]
  - Folliculitis [Fatal]
  - Hepatic cirrhosis [Fatal]
  - Decreased appetite [Fatal]
  - Hepatic enzyme increased [Fatal]
  - Lower respiratory tract infection [Fatal]
  - Malaise [Fatal]
  - Grip strength decreased [Fatal]
  - Porphyria acute [Fatal]
  - Deep vein thrombosis postoperative [Fatal]
  - Feeling hot [Fatal]
  - Functional gastrointestinal disorder [Fatal]
  - Hypoaesthesia [Fatal]
  - Hypertension [Fatal]
  - Bone erosion [Fatal]
  - General physical health deterioration [Fatal]
  - Arthritis [Fatal]
  - Osteoporosis [Fatal]
  - Exostosis [Fatal]
  - Weight decreased [Fatal]
  - Joint swelling [Fatal]
  - Memory impairment [Fatal]
  - Sleep disorder [Fatal]
  - Musculoskeletal stiffness [Fatal]
  - Headache [Fatal]
  - Lung disorder [Fatal]
  - Hand deformity [Fatal]
